FAERS Safety Report 10442832 (Version 1)
Quarter: 2014Q3

REPORT INFORMATION
  Report Type: Spontaneous
  Country: US (occurrence: US)
  Receive Date: 20140909
  Receipt Date: 20140909
  Transmission Date: 20150326
  Serious: Yes (Hospitalization)
  Sender: FDA-Public Use
  Company Number: US-MYLAN-2014M1003924

PATIENT

DRUGS (5)
  1. FOMEPIZOLE. [Suspect]
     Active Substance: FOMEPIZOLE
     Dosage: 10MG/KG, UNDILUTED OVER 30 MIN
     Route: 042
  2. ETHYLENE GLYCOL [Concomitant]
     Active Substance: ETHYLENE GLYCOL
     Dosage: 12 OZ
     Route: 048
  3. FOMEPIZOLE. [Suspect]
     Active Substance: FOMEPIZOLE
     Dosage: 1000MG (15MG/KG) DILUTED IN 100ML OF NORMAL SALINE ADMINISTERED OVER 30 MIN
     Route: 042
  4. ARIPIPRAZOLE [Concomitant]
     Active Substance: ARIPIPRAZOLE
     Route: 065
  5. SALBUTAMOL [Concomitant]
     Active Substance: ALBUTEROL
     Route: 065

REACTIONS (2)
  - Drug administration error [Recovering/Resolving]
  - Thrombophlebitis superficial [Recovering/Resolving]
